FAERS Safety Report 9027839 (Version 1)
Quarter: 2013Q1

REPORT INFORMATION
  Report Type: Spontaneous
  Country: BR (occurrence: BR)
  Receive Date: 20130124
  Receipt Date: 20130124
  Transmission Date: 20140127
  Serious: Yes (Other)
  Sender: FDA-Public Use
  Company Number: BR-JNJFOC-20130110706

PATIENT
  Age: 26 Year
  Sex: Female
  Weight: 81 kg

DRUGS (3)
  1. EVRA [Suspect]
     Indication: CONTRACEPTION
     Route: 062
     Dates: start: 201101
  2. OMNIC OCAS [Suspect]
     Indication: NEPHROLITHIASIS
     Route: 065
     Dates: start: 20130105, end: 20130109
  3. CENTRUM MULTIVITAMINS [Concomitant]
     Route: 065
     Dates: start: 2011

REACTIONS (2)
  - Nephrolithiasis [Recovering/Resolving]
  - Metrorrhagia [Not Recovered/Not Resolved]
